FAERS Safety Report 25771976 (Version 1)
Quarter: 2025Q3

REPORT INFORMATION
  Report Type: Spontaneous
  Country: EU (occurrence: EU)
  Receive Date: 20250908
  Receipt Date: 20250908
  Transmission Date: 20251020
  Serious: Yes (Hospitalization)
  Sender: AMGEN
  Company Number: None

PATIENT
  Age: 57 Year
  Sex: Male
  Weight: 90 kg

DRUGS (8)
  1. NEULASTA [Suspect]
     Active Substance: PEGFILGRASTIM
     Indication: Congenital aplasia
     Route: 058
     Dates: start: 20250603, end: 20250603
  2. NEULASTA [Suspect]
     Active Substance: PEGFILGRASTIM
     Route: 058
     Dates: start: 20250624, end: 20250624
  3. DARZALEX [Suspect]
     Active Substance: DARATUMUMAB
     Indication: Plasma cell myeloma
     Route: 040
     Dates: start: 20250527, end: 20250624
  4. VELCADE [Suspect]
     Active Substance: BORTEZOMIB
     Indication: Plasma cell myeloma
     Route: 040
     Dates: start: 20250527, end: 20250624
  5. REVLIMID [Suspect]
     Active Substance: LENALIDOMIDE
     Indication: Plasma cell myeloma
     Dosage: 1 DOSAGE FORM, QD
     Route: 048
     Dates: start: 20250527, end: 20250624
  6. SPIRAMYCIN [Concomitant]
     Active Substance: SPIRAMYCIN
     Route: 048
     Dates: start: 20250703, end: 20250707
  7. MEROPENEM [Concomitant]
     Active Substance: MEROPENEM
     Route: 040
     Dates: start: 20250703, end: 20250711
  8. DAPTOMYCIN [Concomitant]
     Active Substance: DAPTOMYCIN
     Route: 040
     Dates: start: 20250703, end: 20250710

REACTIONS (2)
  - Cutaneous vasculitis [Recovering/Resolving]
  - Vasculitis [Recovering/Resolving]

NARRATIVE: CASE EVENT DATE: 20250703
